FAERS Safety Report 5684702-5 (Version None)
Quarter: 2008Q1

REPORT INFORMATION
  Report Type: 
  Country: None (occurrence: None)
  Receive Date: 20080328
  Receipt Date: 20070711
  Transmission Date: 20080703
  Serious: Yes (Life-Threatening)
  Sender: FDA-Public Use
  Company Number: US-BRISTOL-MYERS SQUIBB COMPANY-13842703

PATIENT
  Sex: Male
  Weight: 87 kg

DRUGS (7)
  1. ERBITUX [Suspect]
     Indication: COLON CANCER METASTATIC
     Route: 042
  2. OXYCONTIN [Concomitant]
     Route: 048
  3. OXYCODONE HCL [Concomitant]
  4. PROTONIX [Concomitant]
     Route: 048
  5. FLOMAX [Concomitant]
     Route: 048
  6. SENOKOT [Concomitant]
     Route: 048
  7. COMPAZINE [Concomitant]
     Route: 048

REACTIONS (5)
  - ANAPHYLACTIC REACTION [None]
  - COMA [None]
  - CYANOSIS [None]
  - INFUSION RELATED REACTION [None]
  - RALES [None]
